FAERS Safety Report 9115322 (Version 1)
Quarter: 2013Q1

REPORT INFORMATION
  Report Type: Spontaneous
  Country: US (occurrence: None)
  Receive Date: 20130221
  Receipt Date: 20130221
  Transmission Date: 20140127
  Serious: Yes (Disabling, Other)
  Sender: FDA-Public Use
  Company Number: None

PATIENT
  Age: 62 Year
  Sex: Female
  Weight: 64.86 kg

DRUGS (5)
  1. FENOFIBRATE 134 MG GLOBAL PHARM. CORP. [Suspect]
     Indication: BLOOD TRIGLYCERIDES INCREASED
  2. FENOFIBRATE 134 MG GLOBAL PHARM. CORP. [Suspect]
  3. DEPAKOTE [Concomitant]
  4. SEROQUEL [Concomitant]
  5. CYMBALTA [Concomitant]

REACTIONS (3)
  - Muscular weakness [None]
  - Joint stiffness [None]
  - Arthralgia [None]
